FAERS Safety Report 9467597 (Version 1)
Quarter: 2013Q3

REPORT INFORMATION
  Report Type: Spontaneous
  Country: US (occurrence: None)
  Receive Date: 20130819
  Receipt Date: 20130819
  Transmission Date: 20140515
  Serious: Yes (Life-Threatening, Hospitalization)
  Sender: FDA-Public Use
  Company Number: None

PATIENT
  Age: 38 Year
  Sex: Female
  Weight: 71.22 kg

DRUGS (1)
  1. AYGESTIN 5 MG BARR [Suspect]
     Indication: MENSTRUAL DISORDER
     Dosage: 1 PILL  ONCE DAILY  TAKEN BY MOUTH
     Route: 048
     Dates: start: 20121126, end: 20130110

REACTIONS (3)
  - Thrombosis [None]
  - Deep vein thrombosis [None]
  - Procedural haemorrhage [None]
